FAERS Safety Report 9067760 (Version 3)
Quarter: 2013Q1

REPORT INFORMATION
  Report Type: Spontaneous
  Country: SE (occurrence: SE)
  Receive Date: 20130206
  Receipt Date: 20130313
  Transmission Date: 20140127
  Serious: Yes (Hospitalization, Other)
  Sender: FDA-Public Use
  Company Number: PHHY2013SE007512

PATIENT
  Age: 51 Year
  Sex: Female

DRUGS (2)
  1. GILENYA [Suspect]
     Indication: MULTIPLE SCLEROSIS
     Dosage: UNK UKN, UNK
     Route: 048
     Dates: end: 20130122
  2. GILENYA [Suspect]
     Dosage: UNK UKN, UNK
     Route: 048

REACTIONS (9)
  - Pyrexia [Recovering/Resolving]
  - Aphasia [Recovering/Resolving]
  - Hypoaesthesia [Recovering/Resolving]
  - Fatigue [Recovering/Resolving]
  - Headache [Recovering/Resolving]
  - Motor dysfunction [Unknown]
  - Anxiety [Unknown]
  - Malaise [Unknown]
  - Depression [Unknown]
